FAERS Safety Report 12177324 (Version 2)
Quarter: 2016Q1

REPORT INFORMATION
  Report Type: Spontaneous
  Country: BE (occurrence: BE)
  Receive Date: 20160314
  Receipt Date: 20160322
  Transmission Date: 20160526
  Serious: Yes (Disabling, Congenital Anomaly, Other)
  Sender: FDA-Public Use
  Company Number: BE-009507513-1603BEL005156

PATIENT
  Age: 1 Day
  Sex: Male

DRUGS (4)
  1. URFAMYCINE [Concomitant]
     Dosage: PARENT ROUTE OF DAMINISTRATION: AEROSOL
     Route: 064
  2. VOLTAREN [Concomitant]
     Active Substance: DICLOFENAC SODIUM
     Dosage: 2/DAY MAX
     Route: 064
  3. ZINNAT [Concomitant]
     Active Substance: CEFUROXIME AXETIL
     Dosage: PARENT FREQUENCY OF AMINISTRATION: AFTER MEALS
     Route: 064
  4. CELESTONE [Suspect]
     Active Substance: BETAMETHASONE
     Dosage: PARENT ROUTE OF DAMINISTRATION: AEROSOL
     Route: 064
     Dates: start: 19950404

REACTIONS (5)
  - Talipes [Unknown]
  - Foetal exposure during pregnancy [Recovered/Resolved]
  - Deafness [Unknown]
  - Hypermetropia [Unknown]
  - Hypospadias [Unknown]
